FAERS Safety Report 25177909 (Version 1)
Quarter: 2025Q2

REPORT INFORMATION
  Report Type: Spontaneous
  Country: US (occurrence: US)
  Receive Date: 20250409
  Receipt Date: 20250409
  Transmission Date: 20250717
  Serious: Yes (Hospitalization, Other)
  Sender: ACCORD
  Company Number: US-Accord-477614

PATIENT
  Age: 47 Year
  Sex: Female

DRUGS (22)
  1. FUROSEMIDE [Suspect]
     Active Substance: FUROSEMIDE
     Indication: Product used for unknown indication
     Dates: end: 202502
  2. MIFEPRISTONE [Suspect]
     Active Substance: MIFEPRISTONE
     Indication: Ectopic ACTH syndrome
     Route: 048
     Dates: start: 20250131, end: 20250214
  3. BUSPIRONE [Concomitant]
     Active Substance: BUSPIRONE HYDROCHLORIDE
  4. DULOXETINE [Concomitant]
     Active Substance: DULOXETINE
  5. FAMOTIDINE [Concomitant]
     Active Substance: FAMOTIDINE
  6. FLUTICASONE [Concomitant]
     Active Substance: FLUTICASONE
  7. HYDROXYZINE [Concomitant]
     Active Substance: HYDROXYZINE HYDROCHLORIDE
  8. INDAPAMIDE [Concomitant]
     Active Substance: INDAPAMIDE
  9. NOVOLIN N [Concomitant]
     Active Substance: INSULIN HUMAN
  10. MIRENA [Concomitant]
     Active Substance: LEVONORGESTREL
  11. LEVOTHYROXINE [Concomitant]
     Active Substance: LEVOTHYROXINE
  12. METFORMIN [Concomitant]
     Active Substance: METFORMIN HYDROCHLORIDE
  13. METOPROLOL [Concomitant]
     Active Substance: METOPROLOL
  14. MIRTAZAPINE [Concomitant]
     Active Substance: MIRTAZAPINE
  15. PANTOPRAZOLE [Concomitant]
     Active Substance: PANTOPRAZOLE
  16. POTASSIUM [Concomitant]
     Active Substance: POTASSIUM
  17. PROCHLORPERAZINE [Concomitant]
     Active Substance: PROCHLORPERAZINE
  18. ROPINIROLE [Concomitant]
     Active Substance: ROPINIROLE
  19. VERAPAMIL [Concomitant]
     Active Substance: VERAPAMIL HYDROCHLORIDE
  20. OCTREOTIDE [Concomitant]
     Active Substance: OCTREOTIDE
  21. MIFEPRISTONE [Suspect]
     Active Substance: MIFEPRISTONE
     Indication: Ectopic ACTH syndrome
     Route: 048
     Dates: start: 20250215, end: 2025
  22. MIFEPRISTONE [Suspect]
     Active Substance: MIFEPRISTONE
     Indication: Ectopic ACTH syndrome
     Route: 048
     Dates: start: 2025

REACTIONS (6)
  - Hypervolaemia [Recovering/Resolving]
  - Pleural effusion [Recovering/Resolving]
  - Cardiac failure congestive [Unknown]
  - Blood creatinine increased [Unknown]
  - Fatigue [Not Recovered/Not Resolved]
  - Blood potassium decreased [Recovered/Resolved]

NARRATIVE: CASE EVENT DATE: 20250101
